FAERS Safety Report 4862524-2 (Version None)
Quarter: 2005Q4

REPORT INFORMATION
  Report Type: 
  Country: None (occurrence: None)
  Receive Date: 20051221
  Receipt Date: 20050812
  Transmission Date: 20060501
  Serious: Yes (Other)
  Sender: FDA-Public Use
  Company Number: US-GLAXOSMITHKLINE-A0570045A

PATIENT
  Age: 73 Year
  Sex: Male

DRUGS (3)
  1. VALTREX [Suspect]
     Dosage: 1G THREE TIMES PER DAY
     Route: 048
     Dates: start: 20050629, end: 20050706
  2. PREDNISONE TAB [Concomitant]
  3. ZESTRIL [Concomitant]
     Indication: HYPERTENSION
     Dosage: 40MG PER DAY
     Route: 048

REACTIONS (9)
  - ALANINE AMINOTRANSFERASE INCREASED [None]
  - ASPARTATE AMINOTRANSFERASE INCREASED [None]
  - CORNEAL SCAR [None]
  - EYE INFLAMMATION [None]
  - EYE PAIN [None]
  - HERPES ZOSTER OPHTHALMIC [None]
  - LIVER FUNCTION TEST ABNORMAL [None]
  - NIGHT BLINDNESS [None]
  - VISION BLURRED [None]
